FAERS Safety Report 21865771 (Version 2)
Quarter: 2023Q1

REPORT INFORMATION
  Report Type: Report from Study
  Country: US (occurrence: US)
  Receive Date: 20230116
  Receipt Date: 20230118
  Transmission Date: 20230417
  Serious: No
  Sender: FDA-Public Use
  Company Number: US-002147023-NVSC2023US008585

PATIENT
  Sex: Male

DRUGS (2)
  1. LEQVIO [Suspect]
     Active Substance: INCLISIRAN SODIUM
     Indication: Product used for unknown indication
     Dosage: 284 MG, OTHER (FIRST INJECTION DATE 25 APR 2022 AND SECOND INJECTION 25 JUL 2022)
     Route: 058
     Dates: start: 20220425
  2. LEQVIO [Suspect]
     Active Substance: INCLISIRAN SODIUM
     Dosage: 284 MG, OTHER (FIRST INJECTION DATE 25 APR 2022 AND SECOND INJECTION 25 JUL 2022)
     Route: 058
     Dates: start: 20220725

REACTIONS (1)
  - Low density lipoprotein increased [Unknown]
